FAERS Safety Report 5487294-9 (Version None)
Quarter: 2007Q4

REPORT INFORMATION
  Report Type: 
  Country: None (occurrence: None)
  Receive Date: 20071015
  Receipt Date: 20071009
  Transmission Date: 20080405
  Serious: Yes (Hospitalization)
  Sender: FDA-Public Use
  Company Number: CHPA2007US10483

PATIENT
  Age: 57 Year
  Sex: Female
  Weight: 121.1 kg

DRUGS (2)
  1. EX-LAX MILK OF MAGNESIA CHOCOLATE (NCH)(MAGNESIUM HYDROXIDE, SIMETHICO [Suspect]
     Indication: CONSTIPATION
     Dosage: 12 TSP, ONCE/SINGLE AT 11:30 A.M., ORAL; 12 TSP, ONCE/SINGLE AT 06:30P.M.
     Route: 048
     Dates: start: 20071003
  2. CITRUCEL(METHYLCELLULOSE) [Suspect]
     Indication: CONSTIPATION
     Dates: start: 20071003

REACTIONS (6)
  - ANAPHYLACTIC SHOCK [None]
  - ASTHMA [None]
  - DYSPNOEA [None]
  - EAR PAIN [None]
  - OVERDOSE [None]
  - RECTAL HAEMORRHAGE [None]
